FAERS Safety Report 10668078 (Version 1)
Quarter: 2014Q4

REPORT INFORMATION
  Report Type: Spontaneous
  Country: IT (occurrence: None)
  Receive Date: 20141218
  Receipt Date: 20141218
  Transmission Date: 20150529
  Serious: Yes (Hospitalization)
  Sender: FDA-Public Use
  Company Number: 2661651

PATIENT
  Age: 73 Year
  Sex: Male

DRUGS (4)
  1. THEO-DUR [Concomitant]
     Active Substance: THEOPHYLLINE ANHYDROUS
  2. GEMCITABINE HYDROCHLORIDE. [Suspect]
     Active Substance: GEMCITABINE HYDROCHLORIDE
     Indication: BLADDER ADENOCARCINOMA RECURRENT
     Route: 041
     Dates: start: 20130212, end: 20130212
  3. CARBOPLATIN. [Suspect]
     Active Substance: CARBOPLATIN
     Indication: BLADDER ADENOCARCINOMA RECURRENT
     Route: 041
     Dates: start: 20130212, end: 20130212
  4. SERETIDE [Concomitant]
     Active Substance: FLUTICASONE FUROATE\SALMETEROL XINAFOATE

REACTIONS (4)
  - Leukopenia [None]
  - Thrombocytopenia [None]
  - Asthenia [None]
  - Oral candidiasis [None]

NARRATIVE: CASE EVENT DATE: 20130218
